FAERS Safety Report 9517550 (Version 4)
Quarter: 2013Q4

REPORT INFORMATION
  Report Type: Report from Study
  Country: US (occurrence: US)
  Receive Date: 20130911
  Receipt Date: 20131011
  Transmission Date: 20140711
  Serious: Yes (Life-Threatening, Hospitalization, Other)
  Sender: FDA-Public Use
  Company Number: US-009507513-1309USA003150

PATIENT
  Age: 70 Year
  Sex: Female

DRUGS (18)
  1. REBETOL [Suspect]
     Indication: CHRONIC HEPATITIS C
     Dosage: 800 MG, QD
     Route: 048
     Dates: start: 20130702, end: 20130826
  2. REBETOL [Suspect]
     Dosage: 800 MG, QD
     Route: 048
  3. PEGINTERFERON LAMBDA-1A [Suspect]
     Indication: CHRONIC HEPATITIS C
     Dosage: 180 MICROGRAM, QW
     Route: 058
     Dates: start: 20130702, end: 20130826
  4. PEGINTERFERON LAMBDA-1A [Suspect]
     Dosage: 180 MICROGRAM, QW
     Route: 058
  5. DACLATASVIR [Suspect]
     Indication: CHRONIC HEPATITIS C
     Dosage: 60 MG, QD
     Route: 048
     Dates: start: 20130702, end: 20130826
  6. DACLATASVIR [Suspect]
     Dosage: 60 MG, QD
     Route: 048
  7. PEGINTERFERON ALFA-2A [Suspect]
     Indication: CHRONIC HEPATITIS C
     Dosage: 180 MICROGRAM, QW
     Route: 058
     Dates: start: 20130702, end: 20130826
  8. PEGINTERFERON ALFA-2A [Suspect]
     Dosage: 180 MICROGRAM, QW
     Route: 058
  9. ASPIRIN [Concomitant]
  10. GLIPIZIDE [Concomitant]
  11. HYDROCHLOROTHIAZIDE [Concomitant]
  12. ZESTRIL [Concomitant]
  13. CLARITIN [Concomitant]
  14. METFORMIN HYDROCHLORIDE [Concomitant]
  15. NAPROXEN [Concomitant]
     Dosage: UNK
     Dates: start: 20130712
  16. RANITIDINE [Concomitant]
  17. TEMAZEPAM [Concomitant]
  18. CALCIUM MAGNESIUM ZINC [Concomitant]
     Dosage: UNK
     Dates: start: 20130801

REACTIONS (2)
  - Urosepsis [Not Recovered/Not Resolved]
  - Renal failure acute [Not Recovered/Not Resolved]
